FAERS Safety Report 4814006-1 (Version None)
Quarter: 2005Q4

REPORT INFORMATION
  Report Type: 
  Country: None (occurrence: None)
  Receive Date: 20051028
  Receipt Date: 20050221
  Transmission Date: 20060501
  Serious: No
  Sender: FDA-Public Use
  Company Number: US-GLAXOSMITHKLINE-A0546511A

PATIENT
  Age: 52 Year
  Sex: Female

DRUGS (10)
  1. SEREVENT [Suspect]
     Indication: ASTHMA
     Dosage: 1PCT TWICE PER DAY
     Route: 055
  2. RHINOCORT [Concomitant]
  3. ALLEGRA [Concomitant]
  4. TENORMIN [Concomitant]
  5. TRICOR [Concomitant]
  6. LIPITOR [Concomitant]
  7. SEROQUEL [Concomitant]
  8. EFFEXOR [Concomitant]
  9. LAMICTAL [Concomitant]
  10. XANAX [Concomitant]

REACTIONS (3)
  - DYSPHONIA [None]
  - HEART RATE DECREASED [None]
  - THERAPEUTIC RESPONSE UNEXPECTED [None]
